FAERS Safety Report 6268863-5 (Version None)
Quarter: 2009Q3

REPORT INFORMATION
  Report Type: 
  Country: None (occurrence: None)
  Receive Date: 20090709
  Receipt Date: 20090709
  Transmission Date: 20100115
  Serious: Yes (Other)
  Sender: FDA-Public Use
  Company Number: None

PATIENT
  Age: 85 Year
  Sex: Female
  Weight: 113.3993 kg

DRUGS (3)
  1. KADIAN [Suspect]
     Indication: SPINAL COMPRESSION FRACTURE
     Dosage: 100MG QD PO
     Route: 048
  2. MORPHINE SULFATE [Suspect]
     Indication: PAIN
     Dosage: 60MG BID PO
     Route: 048
  3. MORPHINE SULFATE [Suspect]
     Indication: UPPER LIMB FRACTURE
     Dosage: 60MG BID PO
     Route: 048

REACTIONS (2)
  - CONSTIPATION [None]
  - INADEQUATE ANALGESIA [None]
